FAERS Safety Report 8372419-8 (Version None)
Quarter: 2012Q2

REPORT INFORMATION
  Report Type: 
  Country: None (occurrence: None)
  Receive Date: 20120521
  Receipt Date: 20120514
  Transmission Date: 20120825
  Serious: Yes (Other)
  Sender: FDA-Public Use
  Company Number: BR-US-EMD SERONO, INC.-7132752

PATIENT
  Sex: Female

DRUGS (3)
  1. MITOXANTRONE [Concomitant]
     Indication: PRODUCT USED FOR UNKNOWN INDICATION
  2. REBIF [Suspect]
     Indication: SECONDARY PROGRESSIVE MULTIPLE SCLEROSIS
     Dates: start: 20040728
  3. DIPIRONE (DIPYRONE) [Concomitant]
     Indication: PRODUCT USED FOR UNKNOWN INDICATION

REACTIONS (8)
  - COGNITIVE DISORDER [None]
  - DIABETES MELLITUS [None]
  - MOTOR DYSFUNCTION [None]
  - CHOKING [None]
  - VISION BLURRED [None]
  - URINARY RETENTION [None]
  - MYOPIA [None]
  - DYSPHAGIA [None]
